FAERS Safety Report 16125819 (Version 1)
Quarter: 2019Q1

REPORT INFORMATION
  Report Type: Spontaneous
  Country: US (occurrence: US)
  Receive Date: 20190328
  Receipt Date: 20190328
  Transmission Date: 20190418
  Serious: No
  Sender: FDA-Public Use
  Company Number: US-ASTRAZENECA-2019SE34461

PATIENT
  Age: 20302 Day
  Sex: Female
  Weight: 88.5 kg

DRUGS (1)
  1. BYDUREON [Suspect]
     Active Substance: EXENATIDE
     Indication: TYPE 2 DIABETES MELLITUS
     Route: 058
     Dates: start: 2018

REACTIONS (5)
  - Weight decreased [Unknown]
  - Injection site bruising [Unknown]
  - Body height decreased [Unknown]
  - Device leakage [Unknown]
  - Upper limb fracture [Unknown]

NARRATIVE: CASE EVENT DATE: 201811
